FAERS Safety Report 7513865-1 (Version None)
Quarter: 2011Q2

REPORT INFORMATION
  Report Type: 
  Country: None (occurrence: None)
  Receive Date: 20110531
  Receipt Date: 20110520
  Transmission Date: 20111010
  Serious: Yes (Other)
  Sender: FDA-Public Use
  Company Number: PHHY2011GB43887

PATIENT
  Sex: Female

DRUGS (1)
  1. TOPIRAMATE [Suspect]
     Indication: TREMOR
     Dosage: 25 MG, UNK
     Route: 048
     Dates: start: 20101201, end: 20110514

REACTIONS (4)
  - WITHDRAWAL SYNDROME [None]
  - BURNING SENSATION [None]
  - FEELING ABNORMAL [None]
  - DYSGEUSIA [None]
